FAERS Safety Report 7923196-3 (Version None)
Quarter: 2011Q4

REPORT INFORMATION
  Report Type: 
  Country: None (occurrence: None)
  Receive Date: 20111117
  Receipt Date: 20110131
  Transmission Date: 20120403
  Serious: Yes (Other)
  Sender: FDA-Public Use
  Company Number: US-AMGEN-USASP2011005748

PATIENT
  Age: 3 Year
  Sex: Female

DRUGS (3)
  1. ENBREL [Suspect]
     Indication: ECZEMA
  2. ENBREL [Suspect]
     Indication: JUVENILE ARTHRITIS
     Dates: start: 20101102
  3. METHOTREXATE [Concomitant]

REACTIONS (2)
  - VARICELLA [None]
  - RASH PAPULAR [None]
